FAERS Safety Report 11183192 (Version 3)
Quarter: 2015Q3

REPORT INFORMATION
  Report Type: Spontaneous
  Country: CN (occurrence: CN)
  Receive Date: 20150611
  Receipt Date: 20150706
  Transmission Date: 20151125
  Serious: Yes (Hospitalization, Other)
  Sender: FDA-Public Use
  Company Number: CN-GILEAD-2015-0142604

PATIENT
  Age: 71 Year
  Sex: Female

DRUGS (1)
  1. HEPSERA [Suspect]
     Active Substance: ADEFOVIR DIPIVOXIL
     Indication: HEPATITIS B
     Dosage: 1 UNK, QD
     Route: 048
     Dates: start: 2006, end: 20141217

REACTIONS (20)
  - Pain in extremity [Recovering/Resolving]
  - Osteoporosis [Not Recovered/Not Resolved]
  - Rib fracture [Unknown]
  - Exostosis [Not Recovered/Not Resolved]
  - Spinal osteoarthritis [Recovering/Resolving]
  - Fatigue [Recovering/Resolving]
  - Tic [Recovering/Resolving]
  - Proteinuria [Unknown]
  - Blood potassium decreased [Unknown]
  - Muscle twitching [Not Recovered/Not Resolved]
  - Pain [Recovering/Resolving]
  - Meniscus injury [Recovering/Resolving]
  - Joint range of motion decreased [Recovering/Resolving]
  - Hypoparathyroidism [Unknown]
  - Blood phosphorus decreased [Unknown]
  - Fanconi syndrome acquired [Recovering/Resolving]
  - Osteoarthritis [Recovering/Resolving]
  - Arthritis [Recovering/Resolving]
  - Arthralgia [Recovering/Resolving]
  - Pollakiuria [Recovering/Resolving]

NARRATIVE: CASE EVENT DATE: 2013
